FAERS Safety Report 10872037 (Version 1)
Quarter: 2015Q1

REPORT INFORMATION
  Report Type: Spontaneous
  Country: US (occurrence: None)
  Receive Date: 20150223
  Receipt Date: 20150223
  Transmission Date: 20150721
  Serious: No
  Sender: FDA-Public Use
  Company Number: None

PATIENT
  Age: 43 Year
  Sex: Female
  Weight: 68.04 kg

DRUGS (3)
  1. KENALOG [Suspect]
     Active Substance: TRIAMCINOLONE ACETONIDE
     Indication: HYPERSENSITIVITY
     Dosage: ONE SHOT    GIVEN INTO/UNDER THE SKIN
     Route: 058
     Dates: start: 20150115, end: 20150115
  2. IBUPROFEN. [Concomitant]
     Active Substance: IBUPROFEN
  3. ALLERGAN [Concomitant]
     Active Substance: PAPAIN

REACTIONS (8)
  - Quality of life decreased [None]
  - Heart rate irregular [None]
  - Rash [None]
  - Menstruation irregular [None]
  - Swelling face [None]
  - Mood swings [None]
  - Hypersensitivity [None]
  - Injection site reaction [None]

NARRATIVE: CASE EVENT DATE: 20150115
